FAERS Safety Report 11061296 (Version 1)
Quarter: 2015Q2

REPORT INFORMATION
  Report Type: Spontaneous
  Country: US (occurrence: None)
  Receive Date: 20150423
  Receipt Date: 20150423
  Transmission Date: 20150821
  Serious: No
  Sender: FDA-Public Use
  Company Number: None

PATIENT
  Age: 34 Year
  Sex: Female
  Weight: 53.52 kg

DRUGS (9)
  1. UNIPHYL [Concomitant]
     Active Substance: THEOPHYLLINE ANHYDROUS
  2. XOLAIR [Suspect]
     Active Substance: OMALIZUMAB
     Indication: ASTHMA
     Dosage: 300 MG, Q 4 WEEKS, SUBCUTANEOUS
     Route: 058
  3. ALBUTEROL HFA [Concomitant]
     Active Substance: ALBUTEROL SULFATE
  4. PREDNISONE. [Concomitant]
     Active Substance: PREDNISONE
  5. PULMICORT FLEXHALER [Concomitant]
     Active Substance: BUDESONIDE
  6. NAPHCON [Concomitant]
     Active Substance: NAPHAZOLINE HYDROCHLORIDE
  7. SYNTHROID [Concomitant]
     Active Substance: LEVOTHYROXINE SODIUM
  8. CETIRIZINE [Concomitant]
     Active Substance: CETIRIZINE HYDROCHLORIDE
  9. LORATADINE. [Concomitant]
     Active Substance: LORATADINE

REACTIONS (3)
  - Joint stiffness [None]
  - Musculoskeletal stiffness [None]
  - Arthralgia [None]

NARRATIVE: CASE EVENT DATE: 20121201
